FAERS Safety Report 7540376-X (Version None)
Quarter: 2011Q2

REPORT INFORMATION
  Report Type: 
  Country: None (occurrence: None)
  Receive Date: 20110610
  Receipt Date: 20110603
  Transmission Date: 20111010
  Serious: Yes (Hospitalization)
  Sender: FDA-Public Use
  Company Number: US-MERCK-1106USA00453

PATIENT
  Sex: Male

DRUGS (9)
  1. KRYSTEXXA [Concomitant]
     Route: 042
     Dates: start: 20110404, end: 20110404
  2. CORTICOSTEROIDS (UNSPECIFIED) [Concomitant]
     Route: 065
     Dates: start: 20110307, end: 20110404
  3. ANAKINRA [Concomitant]
     Route: 065
  4. COLCHICINE [Suspect]
     Indication: GOUT
     Route: 065
     Dates: start: 20090101, end: 20110418
  5. BUMEX [Suspect]
     Indication: BLOOD PRESSURE ABNORMAL
     Route: 065
     Dates: start: 20090101, end: 20110418
  6. COZAAR [Suspect]
     Indication: BLOOD PRESSURE ABNORMAL
     Route: 048
     Dates: start: 20090101, end: 20110418
  7. KRYSTEXXA [Concomitant]
     Indication: GOUT
     Route: 042
     Dates: start: 20110307, end: 20110307
  8. PREDNISONE [Concomitant]
     Route: 065
  9. KRYSTEXXA [Concomitant]
     Route: 042
     Dates: start: 20110321, end: 20110321

REACTIONS (2)
  - RENAL FAILURE ACUTE [None]
  - HEPATOTOXICITY [None]
